FAERS Safety Report 15438270 (Version 1)
Quarter: 2018Q4

REPORT INFORMATION
  Report Type: Spontaneous
  Country: NL (occurrence: NL)
  Receive Date: 20180928
  Receipt Date: 20180928
  Transmission Date: 20190204
  Serious: Yes (Hospitalization, Other)
  Sender: FDA-Public Use
  Company Number: NL-LUPIN PHARMACEUTICALS INC.-2018-06714

PATIENT
  Age: 23 Year
  Sex: Male

DRUGS (2)
  1. QUETIAPINE FUMARATE EXTENDED-RELEASE TABLETS, 300 MG [Suspect]
     Active Substance: QUETIAPINE FUMARATE
     Dosage: 20 TO 25 TABLETS (A TOTAL OF 6,000-7,500 MG)
     Route: 048
  2. QUETIAPINE FUMARATE EXTENDED-RELEASE TABLETS, 300 MG [Suspect]
     Active Substance: QUETIAPINE FUMARATE
     Indication: POST-TRAUMATIC STRESS DISORDER
     Dosage: 300 MG, QD
     Route: 048

REACTIONS (18)
  - Delirium [Recovered/Resolved]
  - Poisoning [Unknown]
  - Drug level increased [Unknown]
  - Disturbance in attention [Unknown]
  - Akathisia [Unknown]
  - Hallucination [Unknown]
  - Urinary retention [Unknown]
  - Electrocardiogram ST segment depression [Unknown]
  - Miosis [Unknown]
  - Paranoia [Unknown]
  - Somnolence [Unknown]
  - Off label use [None]
  - Intentional overdose [Unknown]
  - Disorientation [Unknown]
  - Abdominal pain [Unknown]
  - Cardiac murmur [Unknown]
  - Sinus tachycardia [Unknown]
  - Psychomotor hyperactivity [Unknown]
